FAERS Safety Report 17999317 (Version 3)
Quarter: 2020Q3

REPORT INFORMATION
  Report Type: Report from Study
  Country: HU (occurrence: HU)
  Receive Date: 20200709
  Receipt Date: 20200813
  Transmission Date: 20201103
  Serious: Yes (Hospitalization, Other)
  Sender: FDA-Public Use
  Company Number: NVSC2020HU134147

PATIENT
  Age: 77 Year

DRUGS (3)
  1. VOTRIENT [Suspect]
     Active Substance: PAZOPANIB HYDROCHLORIDE
     Dosage: 800 MG, QD
     Route: 065
     Dates: start: 20200713, end: 20200803
  2. VOTRIENT [Suspect]
     Active Substance: PAZOPANIB HYDROCHLORIDE
     Indication: PRODUCT USED FOR UNKNOWN INDICATION
     Dosage: UNK
     Route: 065
     Dates: end: 20200701
  3. VOTRIENT [Suspect]
     Active Substance: PAZOPANIB HYDROCHLORIDE
     Dosage: UNK UNK, QD
     Route: 065
     Dates: start: 20200803

REACTIONS (10)
  - Ageusia [Unknown]
  - Blood thyroid stimulating hormone increased [Unknown]
  - Syncope [Unknown]
  - Fluid intake reduced [Unknown]
  - Asthenia [Not Recovered/Not Resolved]
  - Dysphagia [Recovered/Resolved]
  - Tri-iodothyronine decreased [Unknown]
  - Fall [Recovered/Resolved]
  - Pancytopenia [Recovered/Resolved]
  - Decreased appetite [Unknown]

NARRATIVE: CASE EVENT DATE: 2020
